FAERS Safety Report 14249663 (Version 1)
Quarter: 2017Q4

REPORT INFORMATION
  Report Type: Spontaneous
  Country: US (occurrence: US)
  Receive Date: 20171205
  Receipt Date: 20171205
  Transmission Date: 20180321
  Serious: Yes (Death)
  Sender: FDA-Public Use
  Company Number: US-CIPLA LTD.-2017US21913

PATIENT

DRUGS (4)
  1. RISPERIDONE. [Suspect]
     Active Substance: RISPERIDONE
     Dosage: UNK
     Route: 048
  2. TOPIRAMATE. [Suspect]
     Active Substance: TOPIRAMATE
     Dosage: UNK
     Route: 048
  3. LORAZEPAM. [Suspect]
     Active Substance: LORAZEPAM
     Dosage: UNK
     Route: 048
  4. INSULIN [Suspect]
     Active Substance: INSULIN NOS
     Dosage: UNK
     Route: 065

REACTIONS (2)
  - Completed suicide [Fatal]
  - Toxicity to various agents [Fatal]
